FAERS Safety Report 5807482-9 (Version None)
Quarter: 2008Q3

REPORT INFORMATION
  Report Type: 
  Country: None (occurrence: None)
  Receive Date: 20080709
  Receipt Date: 20080709
  Transmission Date: 20090109
  Serious: Yes (Hospitalization)
  Sender: FDA-Public Use
  Company Number: None

PATIENT
  Age: 57 Year
  Sex: Male
  Weight: 97 kg

DRUGS (2)
  1. LISINOPRIL [Suspect]
     Indication: HYPERTENSION
     Dosage: 20 MG EVERY DAY PO
     Route: 048
     Dates: start: 20071218, end: 20080401
  2. NAPROXEN [Suspect]
     Indication: PAIN
     Dosage: 750 MG BID PO
     Route: 048
     Dates: start: 20080225, end: 20080401

REACTIONS (1)
  - ANGIOEDEMA [None]
